FAERS Safety Report 7241530-7 (Version None)
Quarter: 2011Q1

REPORT INFORMATION
  Report Type: 
  Country: None (occurrence: None)
  Receive Date: 20110119
  Receipt Date: 20110119
  Transmission Date: 20110831
  Serious: Yes (Disabling)
  Sender: FDA-Public Use
  Company Number: None

PATIENT
  Sex: Female
  Weight: 23 kg

DRUGS (1)
  1. WALGREENS ALCOHOL PADS 70% WALGREENS [Suspect]
     Dates: start: 20101206, end: 20110114

REACTIONS (5)
  - NAUSEA [None]
  - BACILLUS INFECTION [None]
  - VOMITING [None]
  - PRODUCT CONTAMINATION [None]
  - DIARRHOEA [None]
